FAERS Safety Report 7575627-9 (Version None)
Quarter: 2011Q2

REPORT INFORMATION
  Report Type: 
  Country: None (occurrence: None)
  Receive Date: 20110628
  Receipt Date: 20110614
  Transmission Date: 20111010
  Serious: Yes (Other)
  Sender: FDA-Public Use
  Company Number: GB-MYLANLABS-2011S1006552

PATIENT
  Age: 80 Year
  Sex: Male
  Weight: 91 kg

DRUGS (16)
  1. LEVOTHYROXINE SODIUM [Concomitant]
     Dates: start: 20110307
  2. LEVOTHYROXINE SODIUM [Concomitant]
     Dates: start: 20110110, end: 20110303
  3. LOSARTAN POTASSIUM [Concomitant]
     Indication: PRODUCT USED FOR UNKNOWN INDICATION
     Dates: start: 20101206, end: 20110103
  4. TAMSULOSIN HCL [Suspect]
     Indication: PRODUCT USED FOR UNKNOWN INDICATION
     Dates: start: 20110301
  5. ASPIRIN [Concomitant]
     Indication: PRODUCT USED FOR UNKNOWN INDICATION
     Dates: start: 20101206, end: 20110103
  6. LOSARTAN POTASSIUM [Concomitant]
     Dates: start: 20110307
  7. BISOPROLOL [Concomitant]
     Indication: PRODUCT USED FOR UNKNOWN INDICATION
     Dates: start: 20101206, end: 20110103
  8. LEVOTHYROXINE SODIUM [Concomitant]
     Indication: PRODUCT USED FOR UNKNOWN INDICATION
     Dates: start: 20101206, end: 20110103
  9. TAMSULOSIN HCL [Suspect]
     Dates: start: 20110314
  10. CETRABEN /01007601/ [Concomitant]
     Indication: PRODUCT USED FOR UNKNOWN INDICATION
     Dates: start: 20110226
  11. BISOPROLOL [Concomitant]
     Dates: start: 20110307
  12. FELODIPINE [Concomitant]
     Indication: PRODUCT USED FOR UNKNOWN INDICATION
     Dates: start: 20110226
  13. LOSARTAN POTASSIUM [Concomitant]
     Dates: start: 20110110, end: 20110303
  14. BISOPROLOL [Concomitant]
     Dates: start: 20110110, end: 20110303
  15. ASPIRIN [Concomitant]
     Dates: start: 20110307
  16. ASPIRIN [Concomitant]
     Dates: start: 20110110, end: 20110303

REACTIONS (2)
  - URINARY INCONTINENCE [None]
  - LOSS OF BLADDER SENSATION [None]
